FAERS Safety Report 8207651-7 (Version None)
Quarter: 2012Q1

REPORT INFORMATION
  Report Type: 
  Country: None (occurrence: None)
  Receive Date: 20120314
  Receipt Date: 20120314
  Transmission Date: 20120608
  Serious: Yes (Other)
  Sender: FDA-Public Use
  Company Number: None

PATIENT
  Age: 28 Year
  Sex: Female
  Weight: 87.543 kg

DRUGS (1)
  1. METRONIDAZOLE [Suspect]
     Indication: VAGINITIS BACTERIAL
     Dates: start: 20120310, end: 20120312

REACTIONS (13)
  - VOMITING [None]
  - DIARRHOEA [None]
  - INSOMNIA [None]
  - FATIGUE [None]
  - HEADACHE [None]
  - DIZZINESS [None]
  - TREMOR [None]
  - PARAESTHESIA [None]
  - IMPAIRED WORK ABILITY [None]
  - PAIN IN EXTREMITY [None]
  - NAUSEA [None]
  - CONSTIPATION [None]
  - SENSATION OF HEAVINESS [None]
